FAERS Safety Report 8366605-0 (Version None)
Quarter: 2012Q2

REPORT INFORMATION
  Report Type: 
  Country: None (occurrence: None)
  Receive Date: 20120517
  Receipt Date: 20120509
  Transmission Date: 20120825
  Serious: Yes (Hospitalization, Other)
  Sender: FDA-Public Use
  Company Number: BR-ASTRAZENECA-2012SE30482

PATIENT
  Age: 69 Year
  Sex: Female
  Weight: 60 kg

DRUGS (3)
  1. CRESTOR [Suspect]
     Indication: DYSLIPIDAEMIA
     Route: 048
     Dates: end: 20120301
  2. LOTAR [Concomitant]
     Indication: HYPERTENSION
     Route: 048
  3. CRESTOR [Suspect]
     Route: 048
     Dates: start: 20120301

REACTIONS (2)
  - ADENOMA BENIGN [None]
  - UMBILICAL HERNIA [None]
